FAERS Safety Report 21389840 (Version 1)
Quarter: 2022Q3

REPORT INFORMATION
  Report Type: Spontaneous
  Country: CN (occurrence: CN)
  Receive Date: 20220929
  Receipt Date: 20220929
  Transmission Date: 20221026
  Serious: Yes (Hospitalization, Other)
  Sender: FDA-Public Use
  Company Number: None

PATIENT
  Age: 58 Year
  Sex: Female
  Weight: 46.5 kg

DRUGS (15)
  1. CYCLOPHOSPHAMIDE [Suspect]
     Active Substance: CYCLOPHOSPHAMIDE
     Indication: Malignant neoplasm of thymus
     Dosage: 0.7 G, QD (DILUTED WITH 0.9% SODIUM CHLORIDE INJECTION 40 ML)
     Route: 041
     Dates: start: 20220830, end: 20220830
  2. CYCLOPHOSPHAMIDE [Suspect]
     Active Substance: CYCLOPHOSPHAMIDE
     Indication: Metastases to liver
  3. CYCLOPHOSPHAMIDE [Suspect]
     Active Substance: CYCLOPHOSPHAMIDE
     Indication: Metastases to bone
  4. SODIUM CHLORIDE [Suspect]
     Active Substance: SODIUM CHLORIDE
     Indication: Medication dilution
     Dosage: 40 ML, QD (0.9% SODIUM CHLORIDE INJECTION DILUTED WITH CYCLOPHOSPHAMIDE FOR INJECTION 0.7 G)
     Route: 041
     Dates: start: 20220830, end: 20220830
  5. SODIUM CHLORIDE [Suspect]
     Active Substance: SODIUM CHLORIDE
     Dosage: 500 ML, QD (0.9% SODIUM CHLORIDE INJECTION DILUTED WITH CISPLATIN INJECTION 30 MG)
     Route: 041
     Dates: start: 20220830, end: 20220901
  6. SODIUM CHLORIDE [Suspect]
     Active Substance: SODIUM CHLORIDE
     Dosage: 40 ML, QD (DILUTED WITH 0.9% SODIUM CHLORIDE INJECTION DILUTED WITH EPIRUBICIN HYDROCHLORIDE FOR INJ
     Route: 041
     Dates: start: 20220830, end: 20220901
  7. EPIRUBICIN HYDROCHLORIDE [Suspect]
     Active Substance: EPIRUBICIN HYDROCHLORIDE
     Indication: Malignant neoplasm of thymus
     Dosage: 25 MG, QD (DILUTED WITH 0.9% SODIUM CHLORIDE INJECTION 40 ML)
     Route: 041
     Dates: start: 20220830, end: 20220901
  8. EPIRUBICIN HYDROCHLORIDE [Suspect]
     Active Substance: EPIRUBICIN HYDROCHLORIDE
     Indication: Metastases to liver
  9. EPIRUBICIN HYDROCHLORIDE [Suspect]
     Active Substance: EPIRUBICIN HYDROCHLORIDE
     Indication: Metastases to bone
  10. CISPLATIN [Suspect]
     Active Substance: CISPLATIN
     Indication: Malignant neoplasm of thymus
     Dosage: 30 MG, QD (DILUTED WITH 0.9% SODIUM CHLORIDE INJECTION 500 ML)
     Route: 041
     Dates: start: 20220830, end: 20220901
  11. CISPLATIN [Suspect]
     Active Substance: CISPLATIN
     Indication: Metastases to liver
  12. CISPLATIN [Suspect]
     Active Substance: CISPLATIN
     Indication: Metastases to bone
  13. PREDNISOLONE ACETATE [Suspect]
     Active Substance: PREDNISOLONE ACETATE
     Indication: Malignant neoplasm of thymus
     Dosage: 50 MG, BID
     Route: 048
     Dates: start: 20220830, end: 20220903
  14. PREDNISOLONE ACETATE [Suspect]
     Active Substance: PREDNISOLONE ACETATE
     Indication: Metastases to liver
  15. PREDNISOLONE ACETATE [Suspect]
     Active Substance: PREDNISOLONE ACETATE
     Indication: Metastases to bone

REACTIONS (1)
  - Myelosuppression [Recovering/Resolving]

NARRATIVE: CASE EVENT DATE: 20220911
